FAERS Safety Report 8117040-1 (Version None)
Quarter: 2012Q1

REPORT INFORMATION
  Report Type: 
  Country: None (occurrence: None)
  Receive Date: 20120206
  Receipt Date: 20120131
  Transmission Date: 20120608
  Serious: Yes (Other)
  Sender: FDA-Public Use
  Company Number: US-PFIZER INC-2011309330

PATIENT
  Sex: Female
  Weight: 107 kg

DRUGS (4)
  1. LANTUS [Concomitant]
     Indication: DIABETES MELLITUS
     Dosage: UNK
  2. LIPITOR [Suspect]
     Indication: BLOOD CHOLESTEROL INCREASED
     Dosage: 40 MG, 1X/DAY
     Route: 048
     Dates: start: 19970101, end: 20030101
  3. JANUVIA [Concomitant]
     Indication: DIABETES MELLITUS
     Dosage: UNK
  4. THEOPHYLLINE [Concomitant]
     Dosage: 300 MG, 2X/DAY

REACTIONS (6)
  - FEELING ABNORMAL [None]
  - GLOMERULAR FILTRATION RATE DECREASED [None]
  - FLUID RETENTION [None]
  - SOMNOLENCE [None]
  - BLOOD TRIGLYCERIDES INCREASED [None]
  - WEIGHT INCREASED [None]
